FAERS Safety Report 22590764 (Version 1)
Quarter: 2023Q2

REPORT INFORMATION
  Report Type: Spontaneous
  Country: US (occurrence: None)
  Receive Date: 20230610
  Receipt Date: 20230610
  Transmission Date: 20230722
  Serious: Yes (Other)
  Sender: FDA-Public Use
  Company Number: None

PATIENT
  Age: 44 Year
  Sex: Female
  Weight: 50.4 kg

DRUGS (1)
  1. WALGREENS TRIPLE ANTIBIOTIC [Suspect]
     Active Substance: BACITRACIN ZINC\NEOMYCIN SULFATE\POLYMYXIN B SULFATE
     Indication: Wound
     Route: 061
     Dates: start: 20230608, end: 20230608

REACTIONS (8)
  - Erythema [None]
  - Blister [None]
  - Nausea [None]
  - Body temperature decreased [None]
  - Hypoaesthesia [None]
  - Blood pressure increased [None]
  - Oropharyngeal pain [None]
  - Hypoaesthesia [None]

NARRATIVE: CASE EVENT DATE: 20230609
